FAERS Safety Report 7364396-3 (Version None)
Quarter: 2011Q1

REPORT INFORMATION
  Report Type: 
  Country: None (occurrence: None)
  Receive Date: 20110321
  Receipt Date: 20110311
  Transmission Date: 20110831
  Serious: Yes (Other)
  Sender: FDA-Public Use
  Company Number: US-JNJFOC-2005133925

PATIENT
  Sex: Female

DRUGS (9)
  1. ASPIRIN [Suspect]
     Indication: ARTHRITIS
     Dosage: FREQUENCY TEXT: UNKNOWN DAILY DOSE TEXT: UNKNOWN
     Route: 065
  2. ASPIRIN [Suspect]
     Dosage: FREQUENCY TEXT: UNKNOWN DAILY DOSE TEXT: UNKNOWN
     Route: 065
  3. FLURBIPROFEN [Suspect]
     Indication: ARTHRITIS
     Dosage: FREQUENCY TEXT: UNKNOWN DAILY DOSE TEXT: UNKNOWN
     Route: 065
  4. MOBIC [Concomitant]
     Route: 065
  5. BEXTRA [Suspect]
     Indication: ARTHRITIS
     Dosage: DAILY DOSE QTY: 20 MG
     Route: 065
  6. IBUPROFEN [Suspect]
     Dosage: FREQUENCY TEXT: UNKNOWN DAILY DOSE TEXT: UNKNOWN
     Route: 065
  7. NAPROXEN [Suspect]
     Indication: ARTHRITIS
     Dosage: FREQUENCY TEXT: UNKNOWN DAILY DOSE TEXT: UNKNOWN
     Route: 065
  8. CELEBREX [Suspect]
     Indication: ARTHRITIS
     Dosage: FREQUENCY TEXT: UNKNOWN DAILY DOSE TEXT: UNKNOWN
     Route: 065
  9. IBUPROFEN [Suspect]
     Indication: ARTHRITIS
     Dosage: FREQUENCY TEXT: UNKNOWN DAILY DOSE TEXT: UNKNOWN
     Route: 065

REACTIONS (2)
  - ARTHRITIS [None]
  - COLITIS COLLAGENOUS [None]
